FAERS Safety Report 12194197 (Version 1)
Quarter: 2016Q1

REPORT INFORMATION
  Report Type: Spontaneous
  Country: None (occurrence: None)
  Receive Date: 20160318
  Receipt Date: 20160318
  Transmission Date: 20160526
  Serious: No
  Sender: FDA-Public Use
  Company Number: None

PATIENT
  Age: 27 Year
  Sex: Female

DRUGS (1)
  1. MIRENA [Suspect]
     Active Substance: LEVONORGESTREL
     Dates: start: 20110615, end: 20160308

REACTIONS (11)
  - Dysuria [None]
  - Sleep disorder due to general medical condition, insomnia type [None]
  - Pollakiuria [None]
  - Drug ineffective [None]
  - Breast tenderness [None]
  - Fatigue [None]
  - Acne [None]
  - Loss of libido [None]
  - Dyspareunia [None]
  - Coccydynia [None]
  - Crying [None]

NARRATIVE: CASE EVENT DATE: 20110615
